FAERS Safety Report 18335743 (Version 1)
Quarter: 2020Q4

REPORT INFORMATION
  Report Type: Spontaneous
  Country: US (occurrence: US)
  Receive Date: 20201001
  Receipt Date: 20201001
  Transmission Date: 20210113
  Serious: No
  Sender: FDA-Public Use
  Company Number: US-MYLANLABS-2020M1078521

PATIENT
  Age: 44 Year
  Sex: Female

DRUGS (1)
  1. EPINEPHRINE INJECTION USP AUTO-INJECTOR [Suspect]
     Active Substance: EPINEPHRINE
     Indication: DRUG HYPERSENSITIVITY
     Dosage: 0.3 MILLIGRAM, PRN (AS NEEDED))

REACTIONS (1)
  - Product quality issue [None]

NARRATIVE: CASE EVENT DATE: 20200905
